FAERS Safety Report 10920430 (Version 2)
Quarter: 2018Q1

REPORT INFORMATION
  Report Type: Report from Study
  Country: US (occurrence: US)
  Receive Date: 20150317
  Receipt Date: 20180103
  Transmission Date: 20180508
  Serious: Yes (Death)
  Sender: FDA-Public Use
  Company Number: US-ROCHE-1552362

PATIENT
  Age: 61 Year
  Sex: Male

DRUGS (1)
  1. HERCEPTIN [Suspect]
     Active Substance: TRASTUZUMAB
     Indication: GASTRIC CANCER
     Route: 065
     Dates: end: 20140408

REACTIONS (1)
  - Death [Fatal]

NARRATIVE: CASE EVENT DATE: 20140628
